FAERS Safety Report 17150210 (Version 1)
Quarter: 2019Q4

REPORT INFORMATION
  Report Type: Spontaneous
  Country: US (occurrence: US)
  Receive Date: 20191213
  Receipt Date: 20191213
  Transmission Date: 20200122
  Serious: No
  Sender: FDA-Public Use
  Company Number: US-TEVA-2019-US-1152309

PATIENT
  Age: 63 Year
  Sex: Female

DRUGS (1)
  1. OLOPATADINE 0.2% OPHTHALMIC SOLUTION [Suspect]
     Active Substance: OLOPATADINE HYDROCHLORIDE
     Dosage: OLOPATADINE 0.2% OPHTHALMIC SOLUTION USB
     Route: 047

REACTIONS (3)
  - Product packaging difficult to open [Unknown]
  - Product container issue [Unknown]
  - Hypoaesthesia eye [Unknown]
